FAERS Safety Report 8551971-3 (Version None)
Quarter: 2012Q3

REPORT INFORMATION
  Report Type: 
  Country: None (occurrence: None)
  Receive Date: 20120730
  Receipt Date: 20120719
  Transmission Date: 20120928
  Serious: Yes (Other)
  Sender: FDA-Public Use
  Company Number: CN-BAXTER-2012BAX012401

PATIENT
  Sex: Female
  Weight: 43 kg

DRUGS (2)
  1. EDARAVONE [Suspect]
     Indication: CEREBRAL INFARCTION
     Dates: start: 20110218, end: 20110221
  2. MANNITOL [Suspect]
     Indication: CEREBRAL INFARCTION
     Route: 041
     Dates: start: 20110218, end: 20110221

REACTIONS (1)
  - RENAL IMPAIRMENT [None]
